FAERS Safety Report 9626267 (Version 2)
Quarter: 2013Q4

REPORT INFORMATION
  Report Type: Spontaneous
  Country: GB (occurrence: GB)
  Receive Date: 20131016
  Receipt Date: 20131030
  Transmission Date: 20140711
  Serious: Yes (Life-Threatening, Hospitalization, Other)
  Sender: FDA-Public Use
  Company Number: GB-JNJFOC-20131005993

PATIENT
  Age: 78 Year
  Sex: Male

DRUGS (3)
  1. HALDOL DECONATE [Suspect]
     Indication: AGITATION
     Route: 030
     Dates: start: 20130617
  2. QUININE [Concomitant]
     Indication: PARKINSON^S DISEASE
     Route: 065
  3. DOPAMINE [Concomitant]
     Indication: PARKINSON^S DISEASE
     Route: 065

REACTIONS (2)
  - Coma [Recovering/Resolving]
  - Dehydration [Unknown]
